FAERS Safety Report 20705190 (Version 2)
Quarter: 2022Q2

REPORT INFORMATION
  Report Type: Spontaneous
  Country: US (occurrence: US)
  Receive Date: 20220413
  Receipt Date: 20220427
  Transmission Date: 20220720
  Serious: No
  Sender: FDA-Public Use
  Company Number: US-BAYER-2022A049723

PATIENT
  Age: 47 Year
  Sex: Female

DRUGS (3)
  1. MIRENA [Suspect]
     Active Substance: LEVONORGESTREL
     Indication: Contraception
     Dosage: 20?G/DAY
     Route: 015
     Dates: start: 2019
  2. MIRENA [Suspect]
     Active Substance: LEVONORGESTREL
     Indication: Menstruation irregular
  3. MIRENA [Suspect]
     Active Substance: LEVONORGESTREL
     Indication: Vaginal haemorrhage

REACTIONS (2)
  - Intermenstrual bleeding [None]
  - Drug ineffective [None]

NARRATIVE: CASE EVENT DATE: 20220404
